FAERS Safety Report 4283696-7 (Version None)
Quarter: 2004Q1

REPORT INFORMATION
  Report Type: 
  Country: None (occurrence: None)
  Receive Date: 20040202
  Receipt Date: 20031106
  Transmission Date: 20041129
  Serious: Yes (Hospitalization, Disabling)
  Sender: FDA-Public Use
  Company Number: WAES 0311USA01265

PATIENT
  Age: 81 Year
  Sex: Female
  Weight: 83 kg

DRUGS (9)
  1. ZETIA [Suspect]
     Indication: HYPERLIPIDAEMIA
     Route: 048
     Dates: start: 20030101, end: 20031001
  2. ZETIA [Suspect]
     Indication: LIPIDS ABNORMAL
     Route: 048
     Dates: start: 20030101, end: 20031001
  3. LASIX [Concomitant]
  4. GLUCOTROL [Concomitant]
  5. GLYBURIDE [Concomitant]
  6. IMDUR [Concomitant]
  7. LEVOXYL [Concomitant]
  8. METOPROLOL [Concomitant]
  9. AVANDIA [Suspect]
     Indication: DIABETES MELLITUS NON-INSULIN-DEPENDENT
     Dates: start: 20030901, end: 20030101

REACTIONS (1)
  - JAUNDICE CHOLESTATIC [None]
